FAERS Safety Report 9285675 (Version 2)
Quarter: 2013Q4

REPORT INFORMATION
  Report Type: Spontaneous
  Country: US (occurrence: US)
  Receive Date: 20130513
  Receipt Date: 20131025
  Transmission Date: 20140711
  Serious: Yes (Death, Hospitalization, Other)
  Sender: FDA-Public Use
  Company Number: US-B.I. PHARMACEUTICALS,INC./RIDGEFIELD-2013-BI-13264BP

PATIENT
  Sex: Male
  Weight: 90.72 kg

DRUGS (4)
  1. PRADAXA [Suspect]
     Indication: ANTICOAGULANT THERAPY
     Dosage: 150 MG
     Route: 048
     Dates: start: 20110630, end: 20111226
  2. PRADAXA [Suspect]
     Indication: ATRIAL FIBRILLATION
  3. OXYCONTIN [Concomitant]
  4. OXYCODONE [Concomitant]

REACTIONS (4)
  - Gastrointestinal haemorrhage [Fatal]
  - Neoplasm malignant [Fatal]
  - Anaemia [Unknown]
  - Coagulopathy [Unknown]
